FAERS Safety Report 4289675-8 (Version None)
Quarter: 2004Q1

REPORT INFORMATION
  Report Type: 
  Country: None (occurrence: None)
  Receive Date: 20040122
  Receipt Date: 20030107
  Transmission Date: 20041129
  Serious: Yes (Death)
  Sender: FDA-Public Use
  Company Number: HQ6103110JAN2003

PATIENT
  Sex: 0

DRUGS (1)
  1. DIMETAPP [Suspect]
     Dosage: UNKNOWN, ORAL
     Route: 048

REACTIONS (1)
  - DEATH [None]
